FAERS Safety Report 20520282 (Version 5)
Quarter: 2022Q2

REPORT INFORMATION
  Report Type: Report from Study
  Country: ES (occurrence: ES)
  Receive Date: 20220225
  Receipt Date: 20220628
  Transmission Date: 20220721
  Serious: Yes (Hospitalization, Other)
  Sender: FDA-Public Use
  Company Number: ES-TAKEDA-2022TUS011714

PATIENT
  Age: 62 Year
  Sex: Female

DRUGS (22)
  1. TEDUGLUTIDE [Suspect]
     Active Substance: TEDUGLUTIDE
     Indication: Short-bowel syndrome
     Dosage: UNK
     Route: 042
  2. TEDUGLUTIDE [Suspect]
     Active Substance: TEDUGLUTIDE
     Indication: Short-bowel syndrome
     Dosage: UNK
     Route: 042
  3. TEDUGLUTIDE [Suspect]
     Active Substance: TEDUGLUTIDE
     Indication: Short-bowel syndrome
     Dosage: UNK
     Route: 042
  4. TEDUGLUTIDE [Suspect]
     Active Substance: TEDUGLUTIDE
     Indication: Short-bowel syndrome
     Dosage: UNK
     Route: 042
  5. FERROUS GLYCINE SULFATE [Concomitant]
     Active Substance: FERROUS GLYCINE SULFATE
     Indication: Iron deficiency anaemia
     Dosage: 1 DOSAGE FORM, QD
     Route: 048
     Dates: start: 20210618
  6. FERINJECT [Concomitant]
     Active Substance: FERRIC CARBOXYMALTOSE
     Indication: Iron deficiency anaemia
     Dosage: 1 GRAM, SINGLE
     Route: 042
     Dates: start: 20210709, end: 20210709
  7. RIFAXIMIN [Concomitant]
     Active Substance: RIFAXIMIN
     Indication: Overgrowth bacterial
     Dosage: 1 DOSAGE FORM, TID
     Route: 048
     Dates: start: 20201123, end: 20201129
  8. LEVOTHYROXINE SODIUM [Concomitant]
     Active Substance: LEVOTHYROXINE SODIUM
     Indication: Hypothyroidism
     Dosage: 250 MICROGRAM, 1/WEEK
     Route: 048
     Dates: start: 20151006
  9. LEVOTHYROXINE SODIUM [Concomitant]
     Active Substance: LEVOTHYROXINE SODIUM
     Dosage: 175 MICROGRAM, QD
     Route: 048
  10. CALCIFEDIOL [Concomitant]
     Active Substance: CALCIFEDIOL
     Indication: Osteoporosis
     Dosage: 1 DOSAGE FORM, 1/WEEK
     Route: 065
  11. CALCIFEDIOL [Concomitant]
     Active Substance: CALCIFEDIOL
     Indication: Short-bowel syndrome
  12. CALCIUM CARBONATE\CHOLECALCIFEROL [Concomitant]
     Active Substance: CALCIUM CARBONATE\CHOLECALCIFEROL
     Indication: Short-bowel syndrome
     Dosage: 1 DOSAGE FORM, BID
     Route: 065
  13. CALCIUM CARBONATE\CHOLECALCIFEROL [Concomitant]
     Active Substance: CALCIUM CARBONATE\CHOLECALCIFEROL
     Indication: Osteoporosis
  14. Magnogene [Concomitant]
     Indication: Short-bowel syndrome
     Dosage: 1 DOSAGE FORM, QD
     Route: 065
  15. FOLIC ACID [Concomitant]
     Active Substance: FOLIC ACID
     Indication: Short-bowel syndrome
     Dosage: 1 DOSAGE FORM, QD
     Route: 065
  16. ZINC SULFATE [Concomitant]
     Active Substance: ZINC SULFATE
     Indication: Short-bowel syndrome
     Dosage: 50 MILLIGRAM, QD
     Route: 065
  17. OMEPRAZOLE [Concomitant]
     Active Substance: OMEPRAZOLE
     Indication: Hyperchlorhydria
     Dosage: 20 MILLIGRAM, QD
     Route: 048
     Dates: start: 20220121
  18. LOPERAMIDE [Concomitant]
     Active Substance: LOPERAMIDE
     Indication: Diarrhoea
     Dosage: 2 MILLIGRAM, TID
     Route: 048
     Dates: start: 20220121, end: 20220302
  19. SPIRONOLACTONE [Concomitant]
     Active Substance: SPIRONOLACTONE
     Indication: Diuretic therapy
     Dosage: 100 MILLIGRAM, QD
     Route: 048
     Dates: start: 20220221
  20. SPIRONOLACTONE [Concomitant]
     Active Substance: SPIRONOLACTONE
     Indication: Oedema
  21. FUROSEMIDE [Concomitant]
     Active Substance: FUROSEMIDE
     Indication: Diuretic therapy
     Dosage: 40 MILLIGRAM, QD
     Route: 048
     Dates: start: 20220121, end: 20220428
  22. FUROSEMIDE [Concomitant]
     Active Substance: FUROSEMIDE
     Indication: Oedema
     Dosage: 40 MILLIGRAM, QD
     Route: 048
     Dates: start: 20220221, end: 20220621

REACTIONS (4)
  - Rectal cancer [Recovered/Resolved]
  - Microcytic anaemia [Recovered/Resolved]
  - Iron deficiency anaemia [Not Recovered/Not Resolved]
  - Renal colic [Recovered/Resolved]

NARRATIVE: CASE EVENT DATE: 20210615
